FAERS Safety Report 17443176 (Version 1)
Quarter: 2020Q1

REPORT INFORMATION
  Report Type: Spontaneous
  Country: US (occurrence: US)
  Receive Date: 20200221
  Receipt Date: 20200221
  Transmission Date: 20200409
  Serious: Yes (Life-Threatening, Hospitalization, Other)
  Sender: FDA-Public Use
  Company Number: US-AUROBINDO-AUR-APL-2020-008110

PATIENT
  Age: 42 Year
  Sex: Female
  Weight: 75 kg

DRUGS (2)
  1. DIVALPROEX SODIUM EXTENDED-RELEASE TABLETS USP 500MG [Suspect]
     Active Substance: DIVALPROEX SODIUM
     Indication: BIPOLAR I DISORDER
     Dosage: UNK
     Route: 048
  2. QUETIAPINE. [Concomitant]
     Active Substance: QUETIAPINE
     Indication: BIPOLAR I DISORDER
     Dosage: 20 GRAM TOTAL
     Route: 048

REACTIONS (8)
  - Acinetobacter bacteraemia [Unknown]
  - Metabolic acidosis [Unknown]
  - Respiratory distress [Unknown]
  - Tachycardia [Unknown]
  - Pneumonia aspiration [Unknown]
  - Intentional overdose [Recovered/Resolved]
  - Toxicity to various agents [Recovering/Resolving]
  - Drug level increased [Recovered/Resolved]
